FAERS Safety Report 7961094-X (Version None)
Quarter: 2011Q4

REPORT INFORMATION
  Report Type: 
  Country: None (occurrence: None)
  Receive Date: 20111201
  Receipt Date: 20111201
  Transmission Date: 20120403
  Serious: Yes (Other)
  Sender: FDA-Public Use
  Company Number: None

PATIENT
  Sex: Male

DRUGS (1)
  1. ENBREL [Suspect]
     Indication: PSORIASIS
     Dosage: 50MG WEEKLY SUBCUTANEOUSLY
     Route: 058
     Dates: start: 20090217, end: 20111128

REACTIONS (1)
  - RESPIRATORY TRACT INFECTION FUNGAL [None]
